FAERS Safety Report 4357087-4 (Version None)
Quarter: 2004Q2

REPORT INFORMATION
  Report Type: 
  Country: None (occurrence: None)
  Receive Date: 20040507
  Receipt Date: 20040427
  Transmission Date: 20050107
  Serious: Yes (Hospitalization)
  Sender: FDA-Public Use
  Company Number: JP-JNJFOC-20031201115

PATIENT
  Age: 73 Year
  Sex: Female
  Weight: 63 kg

DRUGS (10)
  1. REMICADE [Suspect]
     Indication: RHEUMATOID ARTHRITIS
     Dosage: 3 MG/KG, 1 IN 1 AS NECESSARY, INTRAVENOUS DRIP
     Route: 041
     Dates: start: 20030729, end: 20030729
  2. REMICADE [Suspect]
     Indication: RHEUMATOID ARTHRITIS
     Dosage: 3 MG/KG, 1 IN 1 AS NECESSARY, INTRAVENOUS DRIP
     Route: 041
     Dates: start: 20030812, end: 20030812
  3. REMICADE [Suspect]
     Indication: RHEUMATOID ARTHRITIS
     Dosage: 3 MG/KG, 1 IN 1 AS NECESSARY, INTRAVENOUS DRIP
     Route: 041
     Dates: start: 20030909, end: 20030909
  4. REMICADE [Suspect]
     Indication: RHEUMATOID ARTHRITIS
     Dosage: 3 MG/KG, 1 IN 1 AS NECESSARY, INTRAVENOUS DRIP
     Route: 041
     Dates: start: 20031105, end: 20031105
  5. RHEUMATREX [Suspect]
     Dosage: 4 MG, IN 1 WEEK
     Dates: start: 20030106, end: 20031201
  6. METHOTREXATE [Concomitant]
  7. PREDNISOLONE [Concomitant]
  8. INDOCIN (INDOMETACIN) SUPPOSITORY [Concomitant]
  9. ZANTAC [Concomitant]
  10. ISONIAZID [Concomitant]

REACTIONS (13)
  - ANAEMIA [None]
  - BLOOD LACTATE DEHYDROGENASE INCREASED [None]
  - BLOOD PRESSURE SYSTOLIC DECREASED [None]
  - CHOLECYSTITIS CHRONIC [None]
  - CHOLELITHIASIS [None]
  - CORONARY ARTERY DISEASE [None]
  - FEELING ABNORMAL [None]
  - INTERSTITIAL LUNG DISEASE [None]
  - LEUKOPENIA [None]
  - NASOPHARYNGITIS [None]
  - PNEUMOCYSTIS CARINII PNEUMONIA [None]
  - RESPIRATORY FAILURE [None]
  - VASCULAR CALCIFICATION [None]
